FAERS Safety Report 4349697-5 (Version None)
Quarter: 2004Q2

REPORT INFORMATION
  Report Type: 
  Country: None (occurrence: None)
  Receive Date: 20040426
  Receipt Date: 20040226
  Transmission Date: 20050107
  Serious: Yes (Other)
  Sender: FDA-Public Use
  Company Number: 2004013247

PATIENT
  Age: 45 Year
  Sex: Female
  Weight: 65.7716 kg

DRUGS (7)
  1. ZITHROMAX [Suspect]
     Indication: INFECTION
     Dosage: 500 MG (DAILY), ORAL
     Route: 048
     Dates: start: 20031206
  2. DIPHENHYDRAMINE HCL [Suspect]
     Indication: URTICARIA
     Dates: start: 20031207
  3. METFORMIN HCL [Concomitant]
  4. GLIPIZIDE [Concomitant]
  5. LEVOTHYROXINE SODIUM [Concomitant]
  6. CIMETIDINE [Concomitant]
  7. AMOXICILLIN [Concomitant]

REACTIONS (11)
  - ANGIONEUROTIC OEDEMA [None]
  - ANXIETY [None]
  - FEELING HOT [None]
  - FLUSHING [None]
  - HEADACHE [None]
  - HYPERSENSITIVITY [None]
  - POSTNASAL DRIP [None]
  - PRURITUS [None]
  - SWELLING [None]
  - THROAT IRRITATION [None]
  - URTICARIA [None]
